FAERS Safety Report 9613103 (Version 2)
Quarter: 2013Q4

REPORT INFORMATION
  Report Type: Report from Study
  Country: US (occurrence: US)
  Receive Date: 20131010
  Receipt Date: 20131010
  Transmission Date: 20140711
  Serious: Yes (Hospitalization)
  Sender: FDA-Public Use
  Company Number: PHEH2013US009327

PATIENT
  Age: 13 Year
  Sex: Female

DRUGS (7)
  1. AFINITOR [Suspect]
     Indication: BRAIN NEOPLASM
     Dosage: 5.0 MG, DAILY
     Route: 048
     Dates: start: 20111001
  2. AFINITOR [Suspect]
     Dosage: UNK
     Dates: start: 20130409, end: 20130920
  3. SIMVASTATIN [Suspect]
  4. PAROXETINE [Concomitant]
  5. CLONIDINE [Concomitant]
  6. MULTIVITAMINS [Concomitant]
  7. CALCIUM + VITAMIN D                /01483701/ [Concomitant]

REACTIONS (7)
  - Gastroenteritis viral [Recovered/Resolved]
  - Vomiting [Recovered/Resolved]
  - Diarrhoea [Recovered/Resolved]
  - Dehydration [Recovered/Resolved]
  - Blood calcium decreased [Recovered/Resolved]
  - Muscle spasms [Recovered/Resolved]
  - Tooth abscess [Unknown]
